FAERS Safety Report 11526103 (Version 1)
Quarter: 2015Q3

REPORT INFORMATION
  Report Type: Spontaneous
  Country: US (occurrence: US)
  Receive Date: 20150918
  Receipt Date: 20150918
  Transmission Date: 20151125
  Serious: Yes (Death, Other)
  Sender: FDA-Public Use
  Company Number: US-TAKEDA-TPA2012A06489

PATIENT

DRUGS (2)
  1. AVANDIA [Concomitant]
     Active Substance: ROSIGLITAZONE MALEATE
     Dosage: 2 MG, UNK
     Dates: end: 200505
  2. ACTOS [Suspect]
     Active Substance: PIOGLITAZONE HYDROCHLORIDE
     Indication: TYPE 2 DIABETES MELLITUS
     Dosage: 15 MG, UNK
     Route: 048
     Dates: start: 200505, end: 201007

REACTIONS (4)
  - Metastases to urinary tract [Fatal]
  - Metastases to prostate [Fatal]
  - Sepsis [Fatal]
  - Metastatic carcinoma of the bladder [Fatal]

NARRATIVE: CASE EVENT DATE: 20090924
